FAERS Safety Report 11217709 (Version 1)
Quarter: 2015Q2

REPORT INFORMATION
  Report Type: Spontaneous
  Country: US (occurrence: None)
  Receive Date: 20150624
  Receipt Date: 20150624
  Transmission Date: 20150821
  Serious: Yes (Hospitalization)
  Sender: FDA-Public Use
  Company Number: None

PATIENT
  Age: 71 Year
  Sex: Male
  Weight: 68.8 kg

DRUGS (1)
  1. ZOLPIDEM [Suspect]
     Active Substance: ZOLPIDEM\ZOLPIDEM TARTRATE
     Indication: INSOMNIA
     Dates: start: 20140204, end: 20150124

REACTIONS (7)
  - Decreased appetite [None]
  - Loss of consciousness [None]
  - Disorientation [None]
  - Seizure [None]
  - Blood electrolytes abnormal [None]
  - Musculoskeletal stiffness [None]
  - Delirium [None]

NARRATIVE: CASE EVENT DATE: 20150123
